FAERS Safety Report 19759085 (Version 1)
Quarter: 2021Q3

REPORT INFORMATION
  Report Type: Spontaneous
  Country: FR (occurrence: FR)
  Receive Date: 20210827
  Receipt Date: 20210827
  Transmission Date: 20211014
  Serious: Yes (Death, Hospitalization)
  Sender: FDA-Public Use
  Company Number: FR-MYLANLABS-2021M1055348

PATIENT
  Age: 93 Year
  Sex: Male
  Weight: 83 kg

DRUGS (15)
  1. LEVOTHYROX [Concomitant]
     Active Substance: LEVOTHYROXINE
     Dosage: UNK
  2. NATISPRAY [Concomitant]
     Active Substance: NITROGLYCERIN
     Dosage: UNK
  3. XELEVIA [Concomitant]
     Active Substance: SITAGLIPTIN PHOSPHATE
     Dosage: UNK
  4. CATAPRESSAN                        /00171102/ [Concomitant]
     Active Substance: CLONIDINE HYDROCHLORIDE
     Dosage: UNK
  5. ESCITALOPRAM ARROW [Concomitant]
     Active Substance: ESCITALOPRAM OXALATE
     Dosage: UNK
  6. UVEDOSE [Concomitant]
     Active Substance: CHOLECALCIFEROL
     Dosage: UNK
  7. ESOMEPRAZOLE. [Concomitant]
     Active Substance: ESOMEPRAZOLE MAGNESIUM
     Dosage: UNK
  8. STAGID [Concomitant]
     Active Substance: METFORMIN PAMOATE
     Dosage: UNK
  9. KARDEGIC [Concomitant]
     Active Substance: ASPIRIN DL-LYSINE
     Dosage: UNK
  10. ATORVASTATINE ARROW [Concomitant]
     Active Substance: ATORVASTATIN
     Dosage: UNK
  11. ELIQUIS [Concomitant]
     Active Substance: APIXABAN
     Dosage: UNK
  12. ACEBUTOLOL [Suspect]
     Active Substance: ACEBUTOLOL
     Indication: PRODUCT USED FOR UNKNOWN INDICATION
     Dosage: UNK
  13. AMIODARONE [Concomitant]
     Active Substance: AMIODARONE
     Dosage: UNK
  14. ATACAND [Concomitant]
     Active Substance: CANDESARTAN CILEXETIL
     Dosage: UNK
  15. COMIRNATY [Suspect]
     Active Substance: TOZINAMERAN
     Indication: COVID-19 IMMUNISATION
     Dosage: 2 DOSAGE FORM, QD
     Route: 030
     Dates: start: 20210120, end: 20210210

REACTIONS (1)
  - Vaccination failure [Fatal]

NARRATIVE: CASE EVENT DATE: 20210223
